FAERS Safety Report 18334354 (Version 2)
Quarter: 2020Q4

REPORT INFORMATION
  Report Type: Report from Study
  Country: None (occurrence: US)
  Receive Date: 20201001
  Receipt Date: 20201101
  Transmission Date: 20210113
  Serious: Yes (Other)
  Sender: FDA-Public Use
  Company Number: US-ABBVIE-20K-163-3544731-00

PATIENT
  Age: 43 Year
  Sex: Female
  Weight: 145.28 kg

DRUGS (2)
  1. HUMIRA [Suspect]
     Active Substance: ADALIMUMAB
     Route: 058
     Dates: start: 20200827
  2. HUMIRA [Suspect]
     Active Substance: ADALIMUMAB
     Indication: RHEUMATOID ARTHRITIS
     Route: 058
     Dates: start: 2015, end: 20200801

REACTIONS (3)
  - Endometrial hyperplasia [Not Recovered/Not Resolved]
  - Skin infection [Unknown]
  - Hypertonic bladder [Not Recovered/Not Resolved]

NARRATIVE: CASE EVENT DATE: 2018
